FAERS Safety Report 8213768-3 (Version None)
Quarter: 2012Q1

REPORT INFORMATION
  Report Type: 
  Country: None (occurrence: None)
  Receive Date: 20120316
  Receipt Date: 20120312
  Transmission Date: 20120608
  Serious: Yes (Hospitalization)
  Sender: FDA-Public Use
  Company Number: PHHY2011AU110546

PATIENT
  Sex: Male

DRUGS (2)
  1. CLOZARIL [Suspect]
     Dosage: 400 MG, UNK
     Dates: start: 20111107
  2. CLOZARIL [Suspect]
     Dosage: 400 MG, UNK
     Dates: start: 20120305

REACTIONS (3)
  - PARANOIA [None]
  - ASOCIAL BEHAVIOUR [None]
  - SCHIZOPHRENIA [None]
